FAERS Safety Report 23985941 (Version 1)
Quarter: 2024Q2

REPORT INFORMATION
  Report Type: Report from Study
  Country: US (occurrence: US)
  Receive Date: 20240618
  Receipt Date: 20240618
  Transmission Date: 20240715
  Serious: Yes (Other)
  Sender: FDA-Public Use
  Company Number: US-PFIZER INC-202400191942

PATIENT
  Age: 61 Year
  Sex: Female

DRUGS (2)
  1. TUKYSA [Suspect]
     Active Substance: TUCATINIB
     Dosage: 200 MG, 2X/DAY
     Route: 048
     Dates: start: 20211116
  2. TUKYSA [Suspect]
     Active Substance: TUCATINIB
     Dosage: 200 MG, 2X/DAY
     Route: 048

REACTIONS (4)
  - Spinal fracture [Unknown]
  - Fractured coccyx [Unknown]
  - Sacroiliac fracture [Unknown]
  - Fall [Unknown]
